FAERS Safety Report 13673908 (Version 1)
Quarter: 2017Q2

REPORT INFORMATION
  Report Type: Spontaneous
  Country: BE (occurrence: BE)
  Receive Date: 20170621
  Receipt Date: 20170621
  Transmission Date: 20170830
  Serious: Yes (Other)
  Sender: FDA-Public Use
  Company Number: BE-PFIZER INC-2017267822

PATIENT
  Age: 80 Year
  Sex: Female

DRUGS (1)
  1. LINCOCIN [Suspect]
     Active Substance: LINCOMYCIN
     Dosage: UNK

REACTIONS (3)
  - Paralysis [Unknown]
  - Sensorimotor disorder [Unknown]
  - Paresis [Unknown]
